FAERS Safety Report 17372291 (Version 1)
Quarter: 2020Q1

REPORT INFORMATION
  Report Type: Spontaneous
  Country: CN (occurrence: CN)
  Receive Date: 20200205
  Receipt Date: 20200205
  Transmission Date: 20200409
  Serious: Yes (Death)
  Sender: FDA-Public Use
  Company Number: CN-FRESENIUS KABI-FK202001170

PATIENT

DRUGS (1)
  1. PROTAMINE SULFATE (MANUFACTURER UNKNOWN) [Suspect]
     Active Substance: PROTAMINE SULFATE
     Indication: RHEUMATIC HEART DISEASE
     Dosage: UNKNOWN
     Route: 065

REACTIONS (1)
  - Hypersensitivity [Fatal]
